FAERS Safety Report 23859031 (Version 1)
Quarter: 2024Q2

REPORT INFORMATION
  Report Type: Spontaneous
  Country: VN (occurrence: None)
  Receive Date: 20240515
  Receipt Date: 20240515
  Transmission Date: 20240716
  Serious: Yes (Other)
  Sender: FDA-Public Use
  Company Number: VN-ROCHE-3560407

PATIENT
  Age: 14 Year
  Sex: Female

DRUGS (1)
  1. OSELTAMIVIR [Suspect]
     Active Substance: OSELTAMIVIR
     Indication: Product used for unknown indication
     Route: 065

REACTIONS (18)
  - Adrenocortical insufficiency acute [Unknown]
  - Hypotension [Unknown]
  - Vomiting [Unknown]
  - Back pain [Unknown]
  - Altered state of consciousness [Unknown]
  - Addison^s disease [Unknown]
  - Skin turgor decreased [Unknown]
  - Capillary nail refill test abnormal [Unknown]
  - Dehydration [Unknown]
  - Pigmentation disorder [Unknown]
  - Skin discolouration [Unknown]
  - Abdominal pain upper [Unknown]
  - Diarrhoea [Unknown]
  - Dizziness [Unknown]
  - Fatigue [Unknown]
  - Blood glucose decreased [Unknown]
  - Blood sodium decreased [Unknown]
  - Blood potassium increased [Unknown]
